FAERS Safety Report 10329459 (Version 5)
Quarter: 2014Q3

REPORT INFORMATION
  Report Type: Spontaneous
  Country: FI (occurrence: FI)
  Receive Date: 20140721
  Receipt Date: 20140926
  Transmission Date: 20150326
  Serious: Yes (Death, Other)
  Sender: FDA-Public Use
  Company Number: FI-JNJFOC-20140711978

PATIENT
  Age: 76 Year
  Sex: Male

DRUGS (2)
  1. REOPRO [Suspect]
     Active Substance: ABCIXIMAB
     Indication: THROMBOSIS
     Dosage: 2 MG/ML SOLUTION FOR INJECTION OR INFUSION
     Route: 042
     Dates: start: 20140626
  2. PLAVIX [Concomitant]
     Active Substance: CLOPIDOGREL BISULFATE
     Route: 065

REACTIONS (5)
  - Thrombosis [Fatal]
  - Inappropriate schedule of drug administration [Unknown]
  - Bradycardia [Fatal]
  - Atrial fibrillation [Fatal]
  - Drug ineffective [Unknown]

NARRATIVE: CASE EVENT DATE: 20140626
